FAERS Safety Report 4559964-8 (Version None)
Quarter: 2005Q1

REPORT INFORMATION
  Report Type: 
  Country: None (occurrence: None)
  Receive Date: 20050120
  Receipt Date: 20050120
  Transmission Date: 20050727
  Serious: Yes (Other)
  Sender: FDA-Public Use
  Company Number: None

PATIENT
  Age: 83 Year
  Sex: Female

DRUGS (2)
  1. DYAZIDE [Suspect]
     Indication: CHRONIC OBSTRUCTIVE PULMONARY DISEASE
     Dosage: ONE QD
     Dates: start: 20041220
  2. DYAZIDE [Suspect]
     Indication: OEDEMA
     Dosage: ONE QD
     Dates: start: 20041220

REACTIONS (1)
  - DIARRHOEA [None]
